FAERS Safety Report 7852662-4 (Version None)
Quarter: 2011Q4

REPORT INFORMATION
  Report Type: 
  Country: None (occurrence: None)
  Receive Date: 20111026
  Receipt Date: 20111024
  Transmission Date: 20120403
  Serious: Yes (Death, Hospitalization)
  Sender: FDA-Public Use
  Company Number: DE-GLAXOSMITHKLINE-D0073120A

PATIENT
  Age: 66 Year
  Sex: Female

DRUGS (5)
  1. ZOMETA [Concomitant]
     Indication: RENAL CELL CARCINOMA
     Route: 042
     Dates: start: 20090101, end: 20110901
  2. VOTRIENT [Suspect]
     Indication: METASTATIC RENAL CELL CARCINOMA
     Dosage: 200MG PER DAY
     Route: 048
     Dates: start: 20110901, end: 20111007
  3. SUTENT [Concomitant]
     Indication: METASTATIC RENAL CELL CARCINOMA
     Route: 048
     Dates: start: 20090101, end: 20110101
  4. NEXAVAR [Concomitant]
     Indication: METASTATIC RENAL CELL CARCINOMA
     Route: 048
     Dates: start: 20110101, end: 20110101
  5. AFINITOR [Concomitant]
     Indication: METASTATIC RENAL CELL CARCINOMA
     Route: 048
     Dates: start: 20110101, end: 20110901

REACTIONS (3)
  - SUBACUTE HEPATIC FAILURE [None]
  - RENAL FAILURE [None]
  - JAUNDICE [None]
